FAERS Safety Report 7153264-8 (Version None)
Quarter: 2010Q4

REPORT INFORMATION
  Report Type: 
  Country: None (occurrence: None)
  Receive Date: 20101213
  Receipt Date: 20101201
  Transmission Date: 20110411
  Serious: Yes (Other)
  Sender: FDA-Public Use
  Company Number: US-ROCHE-724815

PATIENT
  Sex: Male
  Weight: 90.7 kg

DRUGS (1)
  1. ACCUTANE [Suspect]
     Indication: ACNE
     Route: 065
     Dates: start: 20050101, end: 20060101

REACTIONS (11)
  - ANOGENITAL WARTS [None]
  - COLITIS ULCERATIVE [None]
  - DEPRESSION [None]
  - DUODENITIS [None]
  - GASTRITIS [None]
  - GASTROINTESTINAL INJURY [None]
  - HIATUS HERNIA [None]
  - INFLAMMATORY BOWEL DISEASE [None]
  - OESOPHAGEAL ULCER [None]
  - PROCTITIS [None]
  - SUICIDAL IDEATION [None]
